FAERS Safety Report 9465215 (Version 2)
Quarter: 2014Q2

REPORT INFORMATION
  Report Type: Spontaneous
  Country: US (occurrence: US)
  Receive Date: 20130819
  Receipt Date: 20140521
  Transmission Date: 20141212
  Serious: Yes (Hospitalization)
  Sender: FDA-Public Use
  Company Number: US-B.I. PHARMACEUTICALS,INC./RIDGEFIELD-2013-BI-25307BP

PATIENT
  Sex: Male
  Weight: 95.25 kg

DRUGS (8)
  1. PRADAXA [Suspect]
     Indication: ATRIAL FIBRILLATION
     Dosage: 150 MG
     Route: 048
     Dates: start: 20110513, end: 20110817
  2. XANAX [Concomitant]
     Dosage: 1 MG
     Route: 048
     Dates: start: 200809, end: 201207
  3. PROZAC [Concomitant]
     Route: 065
  4. LASIX [Concomitant]
     Dosage: 20 MG
     Route: 048
  5. COMBIGAN [Concomitant]
     Dosage: 1-2 DROPS DAILY, EACH EYE
     Route: 065
  6. PAROXETINE [Concomitant]
     Dosage: 10 MG
     Route: 048
  7. FLUTICASONE [Concomitant]
     Dosage: 1 PUF
     Route: 045
  8. LUMIGAN [Concomitant]
     Dosage: 1-2 DROPS DAILY, EACH EYE
     Route: 065

REACTIONS (2)
  - Lower gastrointestinal haemorrhage [Unknown]
  - Haemorrhagic anaemia [Unknown]
